FAERS Safety Report 10494215 (Version 1)
Quarter: 2014Q4

REPORT INFORMATION
  Report Type: Spontaneous
  Country: US (occurrence: US)
  Receive Date: 20141003
  Receipt Date: 20141003
  Transmission Date: 20150528
  Serious: Yes (Death)
  Sender: FDA-Public Use
  Company Number: US-GLAXOSMITHKLINE-A1064583A

PATIENT
  Age: 84 Year
  Sex: Female

DRUGS (1)
  1. PROMACTA [Suspect]
     Active Substance: ELTROMBOPAG OLAMINE
     Indication: PLATELET COUNT DECREASED
     Dosage: 25MG UNKNOWN
     Route: 065
     Dates: start: 20140203

REACTIONS (4)
  - Cognitive disorder [Fatal]
  - Malaise [Fatal]
  - Hospice care [Fatal]
  - Death [Fatal]
